FAERS Safety Report 4743455-5 (Version None)
Quarter: 2005Q3

REPORT INFORMATION
  Report Type: 
  Country: None (occurrence: None)
  Receive Date: 20050809
  Receipt Date: 20050726
  Transmission Date: 20060218
  Serious: Yes (Hospitalization)
  Sender: FDA-Public Use
  Company Number: 21301

PATIENT
  Age: 23 Year

DRUGS (9)
  1. LEVOTHYROXINE SODIUM [Suspect]
     Indication: DRUG USE FOR UNKNOWN INDICATION
     Dosage: 50,000 MCG Z(50 MCG, 1 IN 1 D) ORAL
     Route: 048
  2. RENAGEL [Suspect]
     Indication: DRUG USE FOR UNKNOWN INDICATION
     Dosage: 6,00 DOSAGE ORAL
     Route: 048
  3. PEGASYS [Suspect]
     Indication: HEPATITIS C
     Dosage: 90 MCG (1 IN 1 WK) INTRAVENOUS
     Route: 042
     Dates: start: 20050104, end: 20050325
  4. OMEPRAZOLE [Suspect]
     Indication: DRUG USE FOR UNKNOWN INDICATION
     Dosage: 20, 000 MG (20 MG,  1 IN 1 D) ORAL
     Route: 048
  5. HYDROCORTISONE [Suspect]
     Indication: DRUG USE FOR UNKNOWN INDICATION
     Dosage: 30,000 MG (30 MG, 1 IN 1 D) ORAL
     Route: 048
  6. KAYEXALATE)POWDER FOR ORAL SUSPENSION) (SODIUM POLYSTYRENE SULFONATE) [Concomitant]
  7. CLARYTINE (10 MG, TABLET) (LORATADINE) [Concomitant]
  8. DOLIPRANE (500 MG, TABLET) (PARACETAMOL) [Concomitant]
  9. SODIUM BICARBONATE (1 GRAM, CAPSULE) (SODIUM BICARBONATE) [Concomitant]

REACTIONS (12)
  - BLOOD PRESSURE DIASTOLIC DECREASED [None]
  - ENDOCARDITIS STAPHYLOCOCCAL [None]
  - EOSINOPHILIA [None]
  - EPISTAXIS [None]
  - FUNGAL SKIN INFECTION [None]
  - ICHTHYOSIS [None]
  - INFLAMMATION [None]
  - LYMPHADENOPATHY [None]
  - LYMPHOPENIA [None]
  - OTITIS MEDIA [None]
  - SINUS TACHYCARDIA [None]
  - STAPHYLOCOCCAL BACTERAEMIA [None]
